FAERS Safety Report 11058680 (Version 1)
Quarter: 2015Q2

REPORT INFORMATION
  Report Type: Spontaneous
  Country: US (occurrence: None)
  Receive Date: 20150422
  Receipt Date: 20150422
  Transmission Date: 20150821
  Serious: Yes (Life-Threatening, Hospitalization)
  Sender: FDA-Public Use
  Company Number: None

PATIENT
  Age: 59 Year
  Sex: Male
  Weight: 81 kg

DRUGS (4)
  1. CLOPIDOGREL [Suspect]
     Active Substance: CLOPIDOGREL BISULFATE
     Indication: CARDIAC OPERATION
     Route: 048
     Dates: start: 20150408, end: 20150415
  2. AMIODARONE [Suspect]
     Active Substance: AMIODARONE
     Indication: VASCULAR OPERATION
     Route: 048
     Dates: start: 20150406, end: 20150415
  3. CLOPIDOGREL [Suspect]
     Active Substance: CLOPIDOGREL BISULFATE
     Indication: VASCULAR OPERATION
     Route: 048
     Dates: start: 20150408, end: 20150415
  4. AMIODARONE [Suspect]
     Active Substance: AMIODARONE
     Indication: CARDIAC OPERATION
     Route: 048
     Dates: start: 20150406, end: 20150415

REACTIONS (1)
  - Angioedema [None]

NARRATIVE: CASE EVENT DATE: 20150415
